FAERS Safety Report 20392081 (Version 3)
Quarter: 2022Q2

REPORT INFORMATION
  Report Type: Spontaneous
  Country: FR (occurrence: FR)
  Receive Date: 20220128
  Receipt Date: 20220607
  Transmission Date: 20220721
  Serious: Yes (Other)
  Sender: FDA-Public Use
  Company Number: FR-INCYTE CORPORATION-2022IN000589

PATIENT

DRUGS (3)
  1. TAFASITAMAB [Suspect]
     Active Substance: TAFASITAMAB
     Indication: Diffuse large B-cell lymphoma refractory
     Dosage: 12 MILLIGRAM/KILOGRAM
     Route: 065
  2. LENALIDOMIDE [Suspect]
     Active Substance: LENALIDOMIDE
     Indication: Diffuse large B-cell lymphoma refractory
     Dosage: 25 MG/DAY (21 DAYS/28 AND CONTINUED FOR 4 WEEKS)
     Route: 065
  3. LENALIDOMIDE [Suspect]
     Active Substance: LENALIDOMIDE
     Dosage: 10 MG/DAY
     Route: 065

REACTIONS (5)
  - Febrile bone marrow aplasia [Unknown]
  - Diffuse large B-cell lymphoma refractory [Unknown]
  - Neutropenia [Unknown]
  - Haematotoxicity [Unknown]
  - Intentional product use issue [Unknown]
